FAERS Safety Report 9337675 (Version 1)
Quarter: 2013Q2

REPORT INFORMATION
  Report Type: Spontaneous
  Country: US (occurrence: US)
  Receive Date: 20130607
  Receipt Date: 20130607
  Transmission Date: 20140414
  Serious: Yes (Other)
  Sender: FDA-Public Use
  Company Number: US-JHP PHARMACEUTICALS, LLC-JHP201300330

PATIENT
  Age: 16 Month
  Sex: Male

DRUGS (3)
  1. PITRESSIN [Suspect]
     Indication: SEPTIC SHOCK
     Dosage: 0.06 IU/KG, HR
     Route: 042
  2. EPINEPHRINE [Concomitant]
     Indication: SEPTIC SHOCK
     Dosage: 0.4 ?G/KG, MIN
     Route: 042
  3. ANTIBIOTICS [Concomitant]
     Indication: PNEUMONIA

REACTIONS (1)
  - Hyponatraemia [Recovered/Resolved]
